FAERS Safety Report 8134892-X (Version None)
Quarter: 2012Q1

REPORT INFORMATION
  Report Type: 
  Country: None (occurrence: None)
  Receive Date: 20120214
  Receipt Date: 20120213
  Transmission Date: 20120608
  Serious: Yes (Hospitalization, Other)
  Sender: FDA-Public Use
  Company Number: US-PFIZER INC-2012038786

PATIENT
  Sex: Male

DRUGS (3)
  1. CHANTIX [Suspect]
     Dosage: 1 MG, 2X/DAY
     Dates: start: 20110601, end: 20110101
  2. CHANTIX [Suspect]
     Dosage: UNK
     Route: 048
     Dates: start: 20110601, end: 20110601
  3. CELEXA [Concomitant]
     Dosage: UNK

REACTIONS (4)
  - ANXIETY [None]
  - CARDIAC FAILURE [None]
  - MYOCARDIAL INFARCTION [None]
  - DEPRESSION [None]
